FAERS Safety Report 13603803 (Version 2)
Quarter: 2017Q3

REPORT INFORMATION
  Report Type: Spontaneous
  Country: DE (occurrence: DE)
  Receive Date: 20170602
  Receipt Date: 20170706
  Transmission Date: 20171127
  Serious: Yes (Other)
  Sender: FDA-Public Use
  Company Number: DE-TORRENT-00006559

PATIENT
  Age: 17 Year
  Sex: Female

DRUGS (1)
  1. LEVETIRACETAM HEUMANN [Suspect]
     Active Substance: LEVETIRACETAM

REACTIONS (2)
  - Epilepsy [Recovered/Resolved]
  - Wrong drug administered [Unknown]
